FAERS Safety Report 11856418 (Version 1)
Quarter: 2015Q4

REPORT INFORMATION
  Report Type: Not Available
  Country: US (occurrence: US)
  Receive Date: 20151221
  Receipt Date: 20151221
  Transmission Date: 20160305
  Serious: No
  Sender: FDA-Public Use
  Company Number: US-ANIPHARMA-2015-US-000959

PATIENT
  Age: 7 Year
  Sex: Female
  Weight: 27.22 kg

DRUGS (2)
  1. UNKNOWN ANTIVIRAL [Concomitant]
  2. VANCOMYCIN HYDROCHLORIDE (NON-SPECIFIC) [Suspect]
     Active Substance: VANCOMYCIN HYDROCHLORIDE
     Route: 048

REACTIONS (1)
  - Muscle spasms [Unknown]
